FAERS Safety Report 7324200-6 (Version None)
Quarter: 2011Q1

REPORT INFORMATION
  Report Type: 
  Country: None (occurrence: None)
  Receive Date: 20110301
  Receipt Date: 20110221
  Transmission Date: 20110831
  Serious: Yes (Death)
  Sender: FDA-Public Use
  Company Number: BO-PFIZER INC-2011032568

PATIENT
  Age: 72 Year
  Sex: Male

DRUGS (3)
  1. FUROSEMIDE [Suspect]
     Indication: HYPERTENSION
     Dosage: UNK
     Route: 048
  2. LYRICA [Suspect]
     Dosage: 75 MG, 1X/DAY
     Route: 048
     Dates: start: 20100429, end: 20100729
  3. CALCIUM CITRATE [Suspect]
     Dosage: UNK
     Route: 048

REACTIONS (1)
  - RESPIRATORY FAILURE [None]
